FAERS Safety Report 10004247 (Version 1)
Quarter: 2014Q1

REPORT INFORMATION
  Report Type: Report from Study
  Country: US (occurrence: US)
  Receive Date: 20140312
  Receipt Date: 20140312
  Transmission Date: 20141002
  Serious: Yes (Hospitalization)
  Sender: FDA-Public Use
  Company Number: PHEH2014US004597

PATIENT
  Sex: Male
  Weight: 86 kg

DRUGS (5)
  1. TOBI [Suspect]
     Indication: CYSTIC FIBROSIS
     Dosage: 300 MG, DAILY (300 MG/ 5ML, DAILY)
     Route: 055
     Dates: start: 1997, end: 2013
  2. TOBI [Suspect]
     Indication: CYSTIC FIBROSIS LUNG
  3. TOBI PODHALER [Suspect]
     Indication: CYSTIC FIBROSIS
     Dosage: 112 MG, BID
     Route: 055
     Dates: start: 2013, end: 2013
  4. TOBI PODHALER [Suspect]
     Indication: CYSTIC FIBROSIS LUNG
  5. HYPERTONIC SALINE SOLUTION [Concomitant]
     Dosage: UNK UKN, UNK

REACTIONS (3)
  - Malaise [Recovered/Resolved]
  - Pulmonary function test decreased [Recovered/Resolved]
  - Chest discomfort [Recovered/Resolved]
